FAERS Safety Report 17930356 (Version 2)
Quarter: 2020Q2

REPORT INFORMATION
  Report Type: Spontaneous
  Country: CN (occurrence: CN)
  Receive Date: 20200623
  Receipt Date: 20200624
  Transmission Date: 20200714
  Serious: Yes (Life-Threatening, Other)
  Sender: FDA-Public Use
  Company Number: CN-PFIZER INC-2020239103

PATIENT
  Age: 11 Year
  Sex: Male

DRUGS (7)
  1. METHOTREXATE. [Suspect]
     Active Substance: METHOTREXATE
     Dosage: 12.5 MG
     Route: 037
     Dates: start: 20180409
  2. AZASETRON [Concomitant]
     Active Substance: AZASETRON
     Dosage: 50 MG
     Dates: start: 20180409
  3. SODIUM BICARBONATE. [Concomitant]
     Active Substance: SODIUM BICARBONATE
     Dosage: 30 ML, 3X/DAY
     Route: 041
     Dates: start: 20180408
  4. METHOTREXATE. [Suspect]
     Active Substance: METHOTREXATE
     Indication: PROPHYLAXIS
     Dosage: 6.6 G
     Route: 041
     Dates: start: 20180409
  5. MAGNESIUM ISOGLYCYRRHIZINATE [Concomitant]
     Active Substance: MAGNESIUM ISOGLYCYRRHIZINATE
     Dosage: 50 MG, 1X/DAY
     Route: 041
     Dates: start: 20180408
  6. CYTARABINE. [Concomitant]
     Active Substance: CYTARABINE
     Indication: PROPHYLAXIS
     Dosage: 35 MG
     Route: 037
     Dates: start: 20180409
  7. DEXAMETHASONE. [Concomitant]
     Active Substance: DEXAMETHASONE
     Indication: PROPHYLAXIS
     Dosage: 5 MG
     Route: 037
     Dates: start: 20180409

REACTIONS (8)
  - Pyrexia [Recovered/Resolved]
  - Liver injury [Recovered/Resolved]
  - Vomiting [Recovered/Resolved]
  - Abnormal faeces [Recovered/Resolved]
  - Multiple organ dysfunction syndrome [Recovered/Resolved]
  - Drug clearance decreased [Recovered/Resolved]
  - Renal injury [Recovered/Resolved]
  - Heart injury [Recovered/Resolved]

NARRATIVE: CASE EVENT DATE: 201804
